FAERS Safety Report 8822503 (Version 3)
Quarter: 2012Q4

REPORT INFORMATION
  Report Type: 
  Country: US (occurrence: US)
  Receive Date: 20121003
  Receipt Date: 20121210
  Transmission Date: 20130627
  Serious: Yes (Hospitalization)
  Sender: FDA-Public Use
  Company Number: US-JNJFOC-20120911711

PATIENT
  Age: 69 Year
  Sex: Female
  Weight: 78.02 kg

DRUGS (8)
  1. ZYRTEC IR [Suspect]
     Route: 048
  2. ZYRTEC IR [Suspect]
     Indication: MULTIPLE ALLERGIES
     Dosage: daily since january
     Route: 048
     Dates: start: 201201, end: 20120924
  3. UNKNOWN ALLERGY SHOTS [Interacting]
     Indication: MULTIPLE ALLERGIES
     Dosage: varies, once to twice a week
     Route: 065
  4. ALLEGRA [Suspect]
     Indication: PRODUCT USED FOR UNKNOWN INDICATION
     Route: 065
  5. SYNTHROID [Concomitant]
     Indication: THYROID HORMONE REPLACEMENT THERAPY
     Dosage: 7 years ago
     Route: 065
  6. LIPITOR [Concomitant]
     Indication: BLOOD CHOLESTEROL INCREASED
     Dosage: 10 years ago
     Route: 065
  7. CORGARD [Concomitant]
     Indication: CARDIAC DISORDER
     Dosage: 8 years ago
     Route: 065
  8. AN UNKNOWN MEDICATION [Concomitant]
     Indication: ROUTINE HEALTH MAINTENANCE
     Dosage: daily years ago
     Route: 065

REACTIONS (4)
  - Heart rate irregular [Recovering/Resolving]
  - Drug interaction [Unknown]
  - Palpitations [Recovering/Resolving]
  - Drug administered to patient of inappropriate age [Unknown]
